FAERS Safety Report 4885280-0 (Version None)
Quarter: 2006Q1

REPORT INFORMATION
  Report Type: 
  Country: None (occurrence: None)
  Receive Date: 20060119
  Receipt Date: 20051109
  Transmission Date: 20060701
  Serious: Yes (Other)
  Sender: FDA-Public Use
  Company Number: PHFR2005GB03598

PATIENT
  Age: 45 Year
  Sex: Male

DRUGS (1)
  1. CLOZARIL [Suspect]
     Indication: SCHIZOPHRENIA
     Dosage: 275 MG/DAY
     Route: 048
     Dates: start: 20051017

REACTIONS (4)
  - ATRIAL TACHYCARDIA [None]
  - ATRIOVENTRICULAR BLOCK FIRST DEGREE [None]
  - HEART RATE INCREASED [None]
  - SALIVARY HYPERSECRETION [None]
